FAERS Safety Report 7933553-7 (Version None)
Quarter: 2011Q4

REPORT INFORMATION
  Report Type: 
  Country: None (occurrence: None)
  Receive Date: 20111122
  Receipt Date: 20111109
  Transmission Date: 20120403
  Serious: Yes (Other)
  Sender: FDA-Public Use
  Company Number: US-AMGEN-USASP2011059001

PATIENT
  Age: 62 Year
  Sex: Female

DRUGS (1)
  1. ENBREL [Suspect]
     Indication: PSORIASIS
     Dosage: 50 MG, QWK
     Dates: start: 20110608

REACTIONS (5)
  - JOINT INJURY [None]
  - JOINT SWELLING [None]
  - INCREASED TENDENCY TO BRUISE [None]
  - UPPER LIMB FRACTURE [None]
  - FALL [None]
